FAERS Safety Report 17402316 (Version 1)
Quarter: 2020Q1

REPORT INFORMATION
  Report Type: Spontaneous
  Country: US (occurrence: US)
  Receive Date: 20200210
  Receipt Date: 20200210
  Transmission Date: 20200409
  Serious: No
  Sender: FDA-Public Use
  Company Number: None

PATIENT
  Age: 38 Year
  Sex: Female
  Weight: 54 kg

DRUGS (1)
  1. CAYSTON [Suspect]
     Active Substance: AZTREONAM
     Indication: CYSTIC FIBROSIS
     Dosage: ?          QUANTITY:1 VIAL;?
     Route: 055
     Dates: start: 20100430

REACTIONS (2)
  - Product package associated injury [None]
  - Skin laceration [None]

NARRATIVE: CASE EVENT DATE: 20200209
